FAERS Safety Report 14419131 (Version 1)
Quarter: 2018Q1

REPORT INFORMATION
  Report Type: Spontaneous
  Country: US (occurrence: US)
  Receive Date: 20180119
  Receipt Date: 20180119
  Transmission Date: 20180509
  Serious: Yes (Other)
  Sender: FDA-Public Use
  Company Number: None

PATIENT
  Age: 35 Year
  Sex: Female
  Weight: 57.15 kg

DRUGS (6)
  1. CORTISONE [Suspect]
     Active Substance: CORTISONE\HYDROCORTISONE
     Indication: LIMB INJURY
     Dosage: ?          QUANTITY:1 INJECTION(S);OTHER FREQUENCY:ONCE`;OTHER ROUTE:INJECTED IN SHOULDER JOINT?
     Dates: start: 20180110
  2. VITAMN K2 [Concomitant]
  3. BUPRENORPHINE. [Concomitant]
     Active Substance: BUPRENORPHINE
  4. LEVOTHYROXINE. [Concomitant]
     Active Substance: LEVOTHYROXINE
  5. PRENATAL VITAMINS [Concomitant]
     Active Substance: VITAMINS
  6. VITAMIN D3 [Concomitant]
     Active Substance: CHOLECALCIFEROL

REACTIONS (1)
  - Suppressed lactation [None]

NARRATIVE: CASE EVENT DATE: 20180110
